FAERS Safety Report 5122897-2 (Version None)
Quarter: 2006Q4

REPORT INFORMATION
  Report Type: 
  Country: None (occurrence: None)
  Receive Date: 20061009
  Receipt Date: 20041027
  Transmission Date: 20070319
  Serious: Yes (Hospitalization, Disabling)
  Sender: FDA-Public Use
  Company Number: US-ROCHE-384554

PATIENT
  Age: 20 Year
  Sex: Female
  Weight: 65.8 kg

DRUGS (3)
  1. ACCUTANE [Suspect]
     Dosage: DOSAGE REGIMEN: EVERY DAY
     Route: 048
     Dates: start: 19991206, end: 20000515
  2. MINOCYCLINE HCL [Concomitant]
     Route: 048
     Dates: start: 19991206
  3. ORTHO CYCLEN-28 [Concomitant]
     Dosage: DRUG NAME REPORTED AS ORTHO TRI-CYCLEN
     Route: 048

REACTIONS (39)
  - ADJUSTMENT DISORDER [None]
  - ANAEMIA [None]
  - ANXIETY [None]
  - COAGULOPATHY [None]
  - COLITIS [None]
  - COLITIS ULCERATIVE [None]
  - COSTOCHONDRITIS [None]
  - CROHN'S DISEASE [None]
  - CRYING [None]
  - DECREASED APPETITE [None]
  - DEHYDRATION [None]
  - DRUG ERUPTION [None]
  - DRUG EXPOSURE BEFORE PREGNANCY [None]
  - DRY SKIN [None]
  - ECZEMA [None]
  - EMOTIONAL DISORDER [None]
  - GASTROENTERITIS [None]
  - GASTROINTESTINAL DISORDER [None]
  - GASTROOESOPHAGEAL REFLUX DISEASE [None]
  - HAEMATURIA [None]
  - HIGH RISK PREGNANCY [None]
  - INFLAMMATORY BOWEL DISEASE [None]
  - INSOMNIA [None]
  - INTERNAL INJURY [None]
  - INTERVERTEBRAL DISC DEGENERATION [None]
  - INTESTINAL HAEMORRHAGE [None]
  - IRRITABLE BOWEL SYNDROME [None]
  - MAJOR DEPRESSION [None]
  - MENOMETRORRHAGIA [None]
  - MOOD ALTERED [None]
  - NAUSEA [None]
  - PARTNER STRESS [None]
  - RECTAL HAEMORRHAGE [None]
  - SCOLIOSIS [None]
  - TACHYCARDIA [None]
  - TENDERNESS [None]
  - VICTIM OF SPOUSAL ABUSE [None]
  - VOMITING [None]
  - WEIGHT DECREASED [None]
